FAERS Safety Report 7965196-3 (Version None)
Quarter: 2011Q4

REPORT INFORMATION
  Report Type: 
  Country: None (occurrence: None)
  Receive Date: 20111208
  Receipt Date: 20111129
  Transmission Date: 20120403
  Serious: Yes (Other)
  Sender: FDA-Public Use
  Company Number: FR-JNJFOC-20111202944

PATIENT
  Sex: Male

DRUGS (2)
  1. MINOXIDIL [Suspect]
     Route: 048
  2. MINOXIDIL [Suspect]
     Indication: ACCIDENTAL EXPOSURE
     Route: 048

REACTIONS (3)
  - TACHYCARDIA [None]
  - ACCIDENTAL EXPOSURE [None]
  - TOXICITY TO VARIOUS AGENTS [None]
